FAERS Safety Report 8044342-X (Version None)
Quarter: 2012Q1

REPORT INFORMATION
  Report Type: 
  Country: None (occurrence: None)
  Receive Date: 20120111
  Receipt Date: 20120111
  Transmission Date: 20120608
  Serious: Yes (Other)
  Sender: FDA-Public Use
  Company Number: None

PATIENT
  Age: 80 Year
  Sex: Female

DRUGS (6)
  1. OXYBUTYNIN [Concomitant]
  2. GLIPIZIDE [Concomitant]
  3. DECADRON [Concomitant]
  4. LOVASTATIN [Concomitant]
  5. REVLIMID [Suspect]
     Indication: MULTIPLE MYELOMA
     Dosage: 10MG QD X21D/28D ORALLY
     Route: 048
  6. FAMOTIDINE [Concomitant]

REACTIONS (5)
  - MUSCULAR WEAKNESS [None]
  - COUGH [None]
  - BALANCE DISORDER [None]
  - CONTUSION [None]
  - FALL [None]
